FAERS Safety Report 17605522 (Version 1)
Quarter: 2020Q1

REPORT INFORMATION
  Report Type: Spontaneous
  Country: US (occurrence: US)
  Receive Date: 20200331
  Receipt Date: 20200331
  Transmission Date: 20200409
  Serious: No
  Sender: FDA-Public Use
  Company Number: US-SA-2020SA075564

PATIENT

DRUGS (2)
  1. CERDELGA [Suspect]
     Active Substance: ELIGLUSTAT
     Dosage: 2 DF, QD
  2. CERDELGA [Suspect]
     Active Substance: ELIGLUSTAT
     Dosage: 3 DF, QD

REACTIONS (2)
  - Bone disorder [Unknown]
  - Condition aggravated [Unknown]
